FAERS Safety Report 6465993-X (Version None)
Quarter: 2009Q4

REPORT INFORMATION
  Report Type: 
  Country: None (occurrence: None)
  Receive Date: 20091201
  Receipt Date: 20091201
  Transmission Date: 20100525
  Serious: Yes (Disabling)
  Sender: FDA-Public Use
  Company Number: None

PATIENT
  Age: 66 Year
  Sex: Female
  Weight: 111.1313 kg

DRUGS (1)
  1. VYTORIN [Suspect]
     Indication: BLOOD CHOLESTEROL ABNORMAL
     Dosage: 1 TBLT DAILY 10/20 DAILY
     Dates: start: 20070801, end: 20090801

REACTIONS (4)
  - ARTHRITIS [None]
  - EXOSTOSIS [None]
  - PAIN IN EXTREMITY [None]
  - WALKING AID USER [None]
